FAERS Safety Report 16028791 (Version 1)
Quarter: 2019Q2

REPORT INFORMATION
  Report Type: Spontaneous
  Country: UM (occurrence: UM)
  Receive Date: 20190304
  Receipt Date: 20190304
  Transmission Date: 20190711
  Serious: No
  Sender: FDA-Public Use
  Company Number: None

PATIENT
  Age: 42 Year
  Sex: Female
  Weight: 121.05 kg

DRUGS (1)
  1. OXYCODONE W/APAP 10/325TAB [Suspect]
     Active Substance: ACETAMINOPHEN\OXYCODONE HYDROCHLORIDE
     Indication: SLE ARTHRITIS
     Dosage: ?          QUANTITY:120 TABLET(S);?
     Route: 048
     Dates: start: 20190226, end: 20190227

REACTIONS (2)
  - Pain [None]
  - Abdominal discomfort [None]

NARRATIVE: CASE EVENT DATE: 20190226
